FAERS Safety Report 15756807 (Version 4)
Quarter: 2020Q1

REPORT INFORMATION
  Report Type: Spontaneous
  Country: US (occurrence: US)
  Receive Date: 20181224
  Receipt Date: 20200225
  Transmission Date: 20200409
  Serious: Yes (Hospitalization, Other)
  Sender: FDA-Public Use
  Company Number: US-GLAXOSMITHKLINE-US2018230479

PATIENT
  Age: 79 Year
  Sex: Female
  Weight: 71.2 kg

DRUGS (2)
  1. BREO ELLIPTA [Suspect]
     Active Substance: FLUTICASONE FUROATE\VILANTEROL TRIFENATATE
     Indication: ASTHMA
     Dosage: 1 PUFF(S), Z
     Route: 055
     Dates: start: 20171013, end: 20171016
  2. BREO ELLIPTA [Suspect]
     Active Substance: FLUTICASONE FUROATE\VILANTEROL TRIFENATATE
     Dosage: UNK
     Route: 065

REACTIONS (6)
  - Palpitations [Recovered/Resolved]
  - Hypertension [Recovered/Resolved]
  - Atrial fibrillation [Recovered/Resolved]
  - Neoplasm malignant [Unknown]
  - Asthenia [Recovered/Resolved]
  - Pallor [Recovered/Resolved]

NARRATIVE: CASE EVENT DATE: 201710
